FAERS Safety Report 8879054 (Version 1)
Quarter: 2012Q4

REPORT INFORMATION
  Report Type: Spontaneous
  Country: US (occurrence: None)
  Receive Date: 20121031
  Receipt Date: 20121031
  Transmission Date: 20130627
  Serious: Yes (Hospitalization)
  Sender: FDA-Public Use
  Company Number: None

PATIENT
  Age: 58 Year
  Sex: Male

DRUGS (1)
  1. AMLODIPINE [Suspect]
     Route: 048
     Dates: start: 20121027, end: 20121027

REACTIONS (3)
  - Headache [None]
  - Swollen tongue [None]
  - Product substitution issue [None]
